FAERS Safety Report 23235431 (Version 3)
Quarter: 2024Q2

REPORT INFORMATION
  Report Type: Spontaneous
  Country: US (occurrence: US)
  Receive Date: 20231128
  Receipt Date: 20240412
  Transmission Date: 20240715
  Serious: Yes (Hospitalization, Other)
  Sender: FDA-Public Use
  Company Number: US-PFIZER INC-PV202300193065

PATIENT
  Age: 65 Year
  Sex: Male

DRUGS (3)
  1. PAXLOVID [Interacting]
     Active Substance: NIRMATRELVIR\RITONAVIR
     Indication: COVID-19 treatment
     Dosage: UNK
  2. TACROLIMUS [Interacting]
     Active Substance: TACROLIMUS
     Indication: Kidney transplant rejection
     Dosage: 0.5 MG, 2X/DAY
  3. TACROLIMUS [Interacting]
     Active Substance: TACROLIMUS
     Dosage: 2 MG, 2X/DAY; TWO 2 MG DOSES

REACTIONS (5)
  - Acute kidney injury [Recovering/Resolving]
  - Anuria [Unknown]
  - Transplant rejection [Unknown]
  - Drug interaction [Unknown]
  - Oedema peripheral [Unknown]
